FAERS Safety Report 25319604 (Version 1)
Quarter: 2025Q2

REPORT INFORMATION
  Report Type: Spontaneous
  Country: US (occurrence: None)
  Receive Date: 20250515
  Receipt Date: 20250515
  Transmission Date: 20250717
  Serious: Yes (Other)
  Sender: FDA-CTU
  Company Number: None

PATIENT
  Age: 30 Year
  Sex: Male
  Weight: 103.5 kg

DRUGS (2)
  1. TRUVADA [Suspect]
     Active Substance: EMTRICITABINE\TENOFOVIR DISOPROXIL FUMARATE
     Indication: Prophylaxis against HIV infection
     Dates: start: 20250511
  2. ISENTRESS [Suspect]
     Active Substance: RALTEGRAVIR POTASSIUM

REACTIONS (3)
  - Nausea [None]
  - Vomiting [None]
  - Dehydration [None]

NARRATIVE: CASE EVENT DATE: 20250511
